FAERS Safety Report 13185653 (Version 1)
Quarter: 2017Q1

REPORT INFORMATION
  Report Type: Spontaneous
  Country: US (occurrence: US)
  Receive Date: 20170203
  Receipt Date: 20170203
  Transmission Date: 20170428
  Serious: Yes (Other)
  Sender: FDA-Public Use
  Company Number: US-TEVA-735676USA

PATIENT
  Sex: Female

DRUGS (1)
  1. COPAXONE [Suspect]
     Active Substance: GLATIRAMER ACETATE
     Dosage: UNKNOWN FORM STRENGTH
     Route: 065

REACTIONS (8)
  - Injection site bruising [Unknown]
  - Pain [Unknown]
  - Wheelchair user [Unknown]
  - Depression [Unknown]
  - Amnesia [Unknown]
  - Secondary progressive multiple sclerosis [Unknown]
  - Ataxia [Unknown]
  - Micturition urgency [Unknown]
